FAERS Safety Report 14194313 (Version 1)
Quarter: 2017Q4

REPORT INFORMATION
  Report Type: Spontaneous
  Country: US (occurrence: None)
  Receive Date: 20171115
  Receipt Date: 20171115
  Transmission Date: 20180321
  Serious: Yes (Other)
  Sender: FDA-Public Use
  Company Number: None

PATIENT
  Age: 38 Year
  Sex: Female
  Weight: 124.74 kg

DRUGS (5)
  1. PAMPERIN [Concomitant]
  2. ALBUTEROL NEB TREATMENT [Concomitant]
  3. PREVENTIL INHALER [Concomitant]
  4. HTC [Concomitant]
  5. MIRENA [Suspect]
     Active Substance: LEVONORGESTREL
     Indication: CONTRACEPTION
     Dosage: QUANTITY:1 INSERTED;?FREQUENCY - N/A
     Route: 067

REACTIONS (7)
  - Menorrhagia [None]
  - Hypertension [None]
  - Uterine perforation [None]
  - Device breakage [None]
  - Thrombosis [None]
  - Uterine leiomyoma [None]
  - Ovarian cyst [None]

NARRATIVE: CASE EVENT DATE: 20170306
